FAERS Safety Report 18278961 (Version 1)
Quarter: 2020Q3

REPORT INFORMATION
  Report Type: Spontaneous
  Country: IT (occurrence: IT)
  Receive Date: 20200917
  Receipt Date: 20200917
  Transmission Date: 20201103
  Serious: Yes (Other)
  Sender: FDA-Public Use
  Company Number: IT-SA-2020SA248227

PATIENT

DRUGS (5)
  1. CEFTRIAXONE. [Suspect]
     Active Substance: CEFTRIAXONE
     Indication: COVID-19
     Dosage: UNK
     Dates: start: 20200325
  2. HYDROXYCHLOROQUINE [Suspect]
     Active Substance: HYDROXYCHLOROQUINE
     Indication: COVID-19
     Dosage: UNK
     Dates: start: 20200325
  3. LOPINAVIR/RITONAVIR [Suspect]
     Active Substance: LOPINAVIR\RITONAVIR
     Indication: COVID-19
     Dosage: UNK
     Dates: start: 20200325
  4. HYDROXYCHLOROQUINE [Suspect]
     Active Substance: HYDROXYCHLOROQUINE
     Indication: PRODUCT USE IN UNAPPROVED INDICATION
  5. ENOXAPARIN SODIUM. [Suspect]
     Active Substance: ENOXAPARIN SODIUM
     Indication: COVID-19
     Dosage: UNK
     Dates: start: 20200325

REACTIONS (10)
  - Urticarial vasculitis [Recovered/Resolved]
  - Skin lesion [Recovered/Resolved]
  - Off label use [Unknown]
  - Eczema [Recovered/Resolved]
  - Rash pruritic [Recovered/Resolved]
  - Urticaria [Recovered/Resolved]
  - Skin hyperpigmentation [Recovered/Resolved]
  - Skin degenerative disorder [Recovered/Resolved]
  - Hyperkeratosis [Recovered/Resolved]
  - Lymphocytic infiltration [Recovered/Resolved]

NARRATIVE: CASE EVENT DATE: 20200325
